FAERS Safety Report 8575990-6 (Version None)
Quarter: 2012Q3

REPORT INFORMATION
  Report Type: 
  Country: None (occurrence: None)
  Receive Date: 20120725
  Receipt Date: 20120710
  Transmission Date: 20120928
  Serious: Yes (Hospitalization)
  Sender: FDA-Public Use
  Company Number: FK201201970

PATIENT
  Age: 54 Year
  Sex: Male

DRUGS (4)
  1. IFOSFAMIDE [Suspect]
     Indication: SARCOMA
  2. DEXRAZOXANE [Concomitant]
  3. DOZORUBICIN (DOXORUBICIN) [Concomitant]
  4. MESNA [Concomitant]

REACTIONS (12)
  - GLYCOSURIA [None]
  - ELECTROLYTE IMBALANCE [None]
  - POLYURIA [None]
  - FATIGUE [None]
  - BODY TEMPERATURE INCREASED [None]
  - DECREASED APPETITE [None]
  - PROTEINURIA [None]
  - FANCONI SYNDROME [None]
  - RENAL IMPAIRMENT [None]
  - NEPHROGENIC DIABETES INSIPIDUS [None]
  - POLYDIPSIA [None]
  - PANCYTOPENIA [None]
